FAERS Safety Report 21996449 (Version 1)
Quarter: 2023Q1

REPORT INFORMATION
  Report Type: Spontaneous
  Country: CN (occurrence: None)
  Receive Date: 20230215
  Receipt Date: 20230215
  Transmission Date: 20230417
  Serious: Yes (Other)
  Sender: FDA-Public Use
  Company Number: 2023A035882

PATIENT
  Age: 58 Year
  Sex: Female

DRUGS (1)
  1. OSIMERTINIB [Suspect]
     Active Substance: OSIMERTINIB
     Indication: Lung adenocarcinoma
     Dosage: 80 MG/DAY.
     Route: 048
     Dates: start: 202102

REACTIONS (3)
  - Acute promyelocytic leukaemia [Unknown]
  - Drug resistance [Unknown]
  - Thrombocytopenia [Unknown]
